FAERS Safety Report 4394019-7 (Version None)
Quarter: 2004Q3

REPORT INFORMATION
  Report Type: 
  Country: None (occurrence: None)
  Receive Date: 20040709
  Receipt Date: 20040630
  Transmission Date: 20050211
  Serious: Yes (Life-Threatening, Hospitalization, Other)
  Sender: FDA-Public Use
  Company Number: GB-MERCK-0407GBR00014

PATIENT
  Age: 90 Year
  Sex: Female

DRUGS (5)
  1. ACETAMINOPHEN [Concomitant]
     Route: 048
  2. ATENOLOL [Suspect]
     Indication: HYPERTENSION
     Route: 048
     Dates: start: 20040329, end: 20040406
  3. BENDROFLUMETHIAZIDE [Concomitant]
     Indication: HYPERTENSION
     Route: 048
  4. PSYLLIUM HUSK AND SENNA [Concomitant]
     Indication: CONSTIPATION
     Route: 048
  5. TIMOPTIC [Suspect]
     Indication: GLAUCOMA
     Route: 047
     Dates: start: 20040329, end: 20040406

REACTIONS (5)
  - ATRIOVENTRICULAR BLOCK [None]
  - BLOOD PRESSURE INCREASED [None]
  - BRADYCARDIA [None]
  - PAIN [None]
  - THROMBOSIS [None]
